FAERS Safety Report 21078923 (Version 2)
Quarter: 2022Q3

REPORT INFORMATION
  Report Type: Spontaneous
  Country: US (occurrence: US)
  Receive Date: 20220713
  Receipt Date: 20220730
  Transmission Date: 20221026
  Serious: No
  Sender: FDA-Public Use
  Company Number: US-SANOFI-01182208

PATIENT
  Age: 85 Year
  Sex: Female

DRUGS (2)
  1. LANTUS SOLOSTAR [Suspect]
     Active Substance: INSULIN GLARGINE
     Indication: Diabetes mellitus
     Dosage: 34 IU
  2. LANTUS SOLOSTAR [Suspect]
     Active Substance: INSULIN GLARGINE
     Dosage: 30 IU (SHE TOOK ONLY 30 UNITS INSTEAD OF HER DOSE OF 34 UNITS)
     Dates: start: 20220707

REACTIONS (2)
  - Intentional product misuse [Unknown]
  - Product preparation error [Unknown]

NARRATIVE: CASE EVENT DATE: 20220707
